FAERS Safety Report 7112400-X (Version None)
Quarter: 2010Q4

REPORT INFORMATION
  Report Type: 
  Country: None (occurrence: None)
  Receive Date: 20101119
  Receipt Date: 20101015
  Transmission Date: 20110411
  Serious: No
  Sender: FDA-Public Use
  Company Number: A0887086A

PATIENT
  Age: 60 Year
  Sex: Male

DRUGS (3)
  1. AVODART [Suspect]
     Dosage: .5MG PER DAY
     Route: 048
     Dates: start: 20070101
  2. ASPIRIN [Concomitant]
  3. DIOVAN HCT [Concomitant]

REACTIONS (5)
  - ALOPECIA [None]
  - FEMINISATION ACQUIRED [None]
  - MUSCLE DISORDER [None]
  - SEXUAL DYSFUNCTION [None]
  - THERAPEUTIC RESPONSE UNEXPECTED [None]
